FAERS Safety Report 15849698 (Version 2)
Quarter: 2019Q1

REPORT INFORMATION
  Report Type: Spontaneous
  Country: FR (occurrence: FR)
  Receive Date: 20190121
  Receipt Date: 20190207
  Transmission Date: 20190417
  Serious: Yes (Other)
  Sender: FDA-Public Use
  Company Number: FR-MYLANLABS-2019M1004916

PATIENT
  Age: 87 Year
  Sex: Female

DRUGS (3)
  1. DEXAMETHASONE MYLAN 20 MG/5 ML, SOLUTION INJECTABLE EN AMPOULE [Suspect]
     Active Substance: DEXAMETHASONE
     Indication: PLASMA CELL MYELOMA
     Dosage: 10 MG PAR SEMAINE A PARTIR DU 12/04/2018 (20/5MG/ML)
     Route: 042
     Dates: start: 20180122
  2. REVLIMID [Suspect]
     Active Substance: LENALIDOMIDE
     Indication: PLASMA CELL MYELOMA
     Dosage: 21 JOURS SUR 28, DIMINUTION DES POSOLOGIES ? 15 MG 21 JOURS SUR 28 ? PARTIR DU 12/04/2018
     Route: 048
     Dates: start: 20180122, end: 20180701
  3. TOPALGIC LP [Suspect]
     Active Substance: TRAMADOL HYDROCHLORIDE
     Indication: PAIN
     Dosage: 2 DOSAGE FORM, QD
     Route: 048
     Dates: start: 20180611, end: 201807

REACTIONS (1)
  - Hepatocellular injury [Recovered/Resolved]

NARRATIVE: CASE EVENT DATE: 20180704
